FAERS Safety Report 24758723 (Version 1)
Quarter: 2024Q4

REPORT INFORMATION
  Report Type: Report from Study
  Country: CN (occurrence: CN)
  Receive Date: 20241220
  Receipt Date: 20241220
  Transmission Date: 20250115
  Serious: Yes (Congenital Anomaly)
  Sender: UCB
  Company Number: CN-UCBSA-2024065176

PATIENT

DRUGS (1)
  1. LEVETIRACETAM [Suspect]
     Active Substance: LEVETIRACETAM
     Indication: Epilepsy
     Dosage: UNK
     Route: 064

REACTIONS (4)
  - Congenital anomaly [Unknown]
  - Low birth weight baby [Unknown]
  - Neurodevelopmental delay [Unknown]
  - Maternal exposure during pregnancy [Unknown]
